FAERS Safety Report 4780561-3 (Version None)
Quarter: 2005Q3

REPORT INFORMATION
  Report Type: 
  Country: None (occurrence: None)
  Receive Date: 20050914
  Receipt Date: 20050427
  Transmission Date: 20060218
  Serious: Yes (Hospitalization)
  Sender: FDA-Public Use
  Company Number: 163-20785-05040570

PATIENT
  Age: 69 Year
  Sex: Male

DRUGS (16)
  1. THALOMID [Suspect]
     Indication: MULTIPLE MYELOMA
     Dosage: 50 MG, EVERY OTHER DAY, ORAL
     Route: 048
     Dates: start: 20041001
  2. DEXAMETHASONE [Suspect]
     Indication: MULTIPLE MYELOMA
     Dosage: 20 MG, DAYS 1-4, 9-12, 17-20, ORAL
     Route: 048
     Dates: start: 20041101
  3. TENORMIN [Concomitant]
  4. FOLIC ACID [Concomitant]
  5. ACYCLOVIR [Concomitant]
  6. INTERFERON (INTERFERON) [Concomitant]
  7. PROTONIX [Concomitant]
  8. BACTRIM DS [Concomitant]
  9. NEURONTIN [Concomitant]
  10. DIFLUCAN [Concomitant]
  11. ARANESP [Concomitant]
  12. AREDIA [Concomitant]
  13. AUGMENTIN '125' [Concomitant]
  14. DARVON [Concomitant]
  15. ATIVAN [Concomitant]
  16. FLOMAX [Concomitant]

REACTIONS (1)
  - CHOLELITHIASIS [None]
